FAERS Safety Report 5797180-2 (Version None)
Quarter: 2008Q2

REPORT INFORMATION
  Report Type: 
  Country: None (occurrence: None)
  Receive Date: 20080627
  Receipt Date: 20080613
  Transmission Date: 20081010
  Serious: Yes (Disabling)
  Sender: FDA-Public Use
  Company Number: JPI-P-003968

PATIENT
  Age: 58 Year
  Sex: Male

DRUGS (14)
  1. LUVOX [Suspect]
     Indication: DEPRESSION
     Dosage: (100 MG, 1 D), ORAL
     Route: 048
     Dates: start: 20080521, end: 20080528
  2. VOGLIBOSE        (VOGLIBOSE) [Suspect]
     Indication: DRUG USE FOR UNKNOWN INDICATION
     Dosage: (0.9 MG, 1 D), ORAL
     Route: 048
     Dates: start: 20080512, end: 20080602
  3. EPALRESTAT (EPALRESTAT) [Suspect]
     Indication: DRUG USE FOR UNKNOWN INDICATION
     Dosage: (150 MG, 1 D), ORAL
     Route: 048
     Dates: start: 20080513, end: 20080526
  4. DAI-KENCHU-TO [Suspect]
     Indication: DRUG USE FOR UNKNOWN INDICATION
     Dosage: (22.5 MG, 1 D), ORAL
     Route: 048
     Dates: start: 20080519, end: 20080602
  5. CANDESARTAN CILEXETIL      (CANDESARTAN CILEXETIL) [Concomitant]
  6. TELMISARTAN  (TELMISARTAN) [Concomitant]
  7. AMLODIPINE BESYLATE [Concomitant]
  8. BENFOTIAMINE, B6, B12 COMBINED DRUG [Concomitant]
  9. ZOLPIDEM TARTRATE [Concomitant]
  10. FERROUS FUMARATE [Concomitant]
  11. MOSAPRIDE CITRATE (MOSAPRIDE CITRATE) [Concomitant]
  12. MAGNESIUM OXIDE (MAGNESIUM OXIDE) [Concomitant]
  13. INSULIN DETEMIR (INSULIN DETEMIR) [Concomitant]
  14. INSULIN LISPRO (INSULIN LISPRO) [Concomitant]

REACTIONS (3)
  - ALANINE AMINOTRANSFERASE INCREASED [None]
  - ASPARTATE AMINOTRANSFERASE INCREASED [None]
  - HEPATIC FUNCTION ABNORMAL [None]
